FAERS Safety Report 9748627 (Version 2)
Quarter: 2014Q1

REPORT INFORMATION
  Report Type: Report from Study
  Country: US (occurrence: US)
  Receive Date: 20131212
  Receipt Date: 20140228
  Transmission Date: 20141002
  Serious: Yes (Other)
  Sender: FDA-Public Use
  Company Number: US-ASTELLAS-2013US012747

PATIENT
  Age: 14 Day
  Sex: Male
  Weight: 3 kg

DRUGS (4)
  1. BLINDED MICAFUNGIN INJECTION [Suspect]
     Indication: NEONATAL CANDIDA INFECTION
     Dosage: BLINDED, UID/QD
     Route: 042
     Dates: start: 20131127, end: 20131203
  2. NORMAL SALINE [Concomitant]
     Indication: TACHYCARDIA
     Dosage: 15-30 ML, UID/QD
     Route: 040
     Dates: start: 20131121, end: 20131125
  3. NORMAL SALINE [Concomitant]
     Dosage: 31 ML, TOTAL DOSE
     Route: 040
     Dates: start: 20131116, end: 20131116
  4. ATROPINE [Concomitant]
     Indication: TACHYCARDIA
     Dosage: 0.05 MG, TOTAL DOSE
     Route: 042
     Dates: start: 20131121, end: 20131121

REACTIONS (1)
  - Hypertension [Recovered/Resolved]
